FAERS Safety Report 19567837 (Version 2)
Quarter: 2021Q3

REPORT INFORMATION
  Report Type: Report from Study
  Country: CA (occurrence: CA)
  Receive Date: 20210716
  Receipt Date: 20210730
  Transmission Date: 20211014
  Serious: Yes (Other)
  Sender: FDA-Public Use
  Company Number: CA-JNJFOC-20210714582

PATIENT
  Age: 54 Year
  Sex: Female

DRUGS (3)
  1. COVID?19 VACCINE [Concomitant]
     Indication: COVID-19 PROPHYLAXIS
     Route: 065
  2. STELARA [Suspect]
     Active Substance: USTEKINUMAB
     Indication: PSORIATIC ARTHROPATHY
  3. STELARA [Suspect]
     Active Substance: USTEKINUMAB
     Indication: CROHN^S DISEASE
     Route: 058
     Dates: start: 20180920

REACTIONS (2)
  - Wound infection [Unknown]
  - Skin laceration [Unknown]

NARRATIVE: CASE EVENT DATE: 2021
